FAERS Safety Report 5115719-7 (Version None)
Quarter: 2006Q3

REPORT INFORMATION
  Report Type: 
  Country: None (occurrence: None)
  Receive Date: 20060927
  Receipt Date: 20060224
  Transmission Date: 20061208
  Serious: No
  Sender: FDA-Public Use
  Company Number: US-GLAXOSMITHKLINE-A0595136A

PATIENT

DRUGS (1)
  1. LAMOTRIGINE [Suspect]
     Indication: DRUG USE FOR UNKNOWN INDICATION
     Dosage: 25MG UNKNOWN
     Route: 048

REACTIONS (1)
  - HYPERSENSITIVITY [None]
